FAERS Safety Report 20408065 (Version 1)
Quarter: 2022Q1

REPORT INFORMATION
  Report Type: Report from Study
  Country: CN (occurrence: CN)
  Receive Date: 20220201
  Receipt Date: 20220201
  Transmission Date: 20220423
  Serious: Yes (Other)
  Sender: FDA-Public Use
  Company Number: CN-KYOWAKIRIN-2022AKK000833

PATIENT
  Age: 49 Year
  Sex: Female

DRUGS (1)
  1. CINACALCET HYDROCHLORIDE [Suspect]
     Active Substance: CINACALCET HYDROCHLORIDE
     Indication: Hyperparathyroidism secondary
     Dosage: UNK
     Route: 048

REACTIONS (12)
  - Hypokalaemia [Recovered/Resolved]
  - Leukopenia [Unknown]
  - Hyperchloraemia [Recovered/Resolved]
  - Inflammation [Recovered/Resolved]
  - Eosinophil count increased [Recovered/Resolved]
  - Lymphopenia [Unknown]
  - Eosinophil count increased [Recovered/Resolved]
  - Eosinophil count increased [Unknown]
  - Monocytopenia [Unknown]
  - Hypernatraemia [Recovered/Resolved]
  - Hypermagnesaemia [Recovered/Resolved]
  - Blood lactate dehydrogenase increased [Unknown]

NARRATIVE: CASE EVENT DATE: 20201026
